FAERS Safety Report 5660241-2 (Version None)
Quarter: 2008Q1

REPORT INFORMATION
  Report Type: 
  Country: None (occurrence: None)
  Receive Date: 20080306
  Receipt Date: 20080221
  Transmission Date: 20080703
  Serious: Yes (Death, Life-Threatening, Hospitalization, Other)
  Sender: FDA-Public Use
  Company Number: MC200800084

PATIENT
  Age: 69 Year
  Sex: Male

DRUGS (3)
  1. ANGIOMAX [Suspect]
     Indication: ANTICOAGULATION DRUG LEVEL
     Dosage: INTRAVENOUS
     Route: 042
     Dates: start: 20071016, end: 20071016
  2. PLAVIX [Suspect]
     Dosage: 75 MG, QD, ORAL
     Route: 048
  3. KARDEGIC /00002703/(ACETYLSALICYLATE LYSINE) [Suspect]
     Dosage: ORAL
     Route: 048
     Dates: start: 20071004

REACTIONS (2)
  - CEREBRAL HAEMORRHAGE [None]
  - HYPERTENSION [None]
